FAERS Safety Report 10662021 (Version 3)
Quarter: 2015Q2

REPORT INFORMATION
  Report Type: Spontaneous
  Country: JP (occurrence: JP)
  Receive Date: 20141218
  Receipt Date: 20150615
  Transmission Date: 20150821
  Serious: Yes (Life-Threatening)
  Sender: FDA-Public Use
  Company Number: JP-PFIZER INC-2014346846

PATIENT
  Age: 72 Year
  Sex: Male
  Weight: 54 kg

DRUGS (8)
  1. CAMPTO [Suspect]
     Active Substance: IRINOTECAN
     Dosage: 100 MG, 1X/DAY
     Route: 041
     Dates: start: 20100625, end: 20100625
  2. CAMPTO [Suspect]
     Active Substance: IRINOTECAN
     Indication: SMALL CELL LUNG CANCER
     Dosage: 100 MG, 1X/DAY, 100 MG/BODY (62 MG/M2)
     Route: 041
     Dates: start: 20100618, end: 20100618
  3. CAMPTO [Suspect]
     Active Substance: IRINOTECAN
     Dosage: 80 MG, 1X/DAY, 80 MG/BODY (49.6 MG/M2)
     Route: 041
     Dates: start: 20100723, end: 20100723
  4. CISPLATIN. [Suspect]
     Active Substance: CISPLATIN
     Indication: SMALL CELL LUNG CANCER
     Dosage: 100 MG, 1X/DAY, 100 MG/BODY (62 MG/M2)
     Route: 041
     Dates: start: 20100618, end: 20100618
  5. SEROTONE [Concomitant]
     Active Substance: AZASETRON HYDROCHLORIDE
     Dosage: UNK
     Dates: start: 20100618, end: 20100723
  6. CAMPTO [Suspect]
     Active Substance: IRINOTECAN
     Dosage: 100 MG, 1X/DAY
     Route: 041
     Dates: start: 20100716, end: 20100716
  7. CISPLATIN. [Suspect]
     Active Substance: CISPLATIN
     Dosage: 80 MG, 1X/DAY, 80 MG/BODY (49.6 MG/M2)
     Route: 041
     Dates: start: 20100716, end: 20100716
  8. DECADRON [Concomitant]
     Active Substance: DEXAMETHASONE
     Dosage: UNK
     Dates: start: 20100618, end: 20100723

REACTIONS (2)
  - Intestinal tuberculosis [Recovering/Resolving]
  - Diarrhoea [Recovering/Resolving]

NARRATIVE: CASE EVENT DATE: 2010
